FAERS Safety Report 9205464 (Version 1)
Quarter: 2013Q2

REPORT INFORMATION
  Report Type: Spontaneous
  Country: US (occurrence: US)
  Receive Date: 20130403
  Receipt Date: 20130403
  Transmission Date: 20140414
  Serious: No
  Sender: FDA-Public Use
  Company Number: US-009507513-1304USA000816

PATIENT
  Age: 54 Year
  Sex: Female

DRUGS (7)
  1. SINGULAIR [Suspect]
     Indication: ASTHMA
     Dosage: 10 MG, QD
     Route: 048
     Dates: end: 201303
  2. SINGULAIR [Suspect]
     Indication: HYPERSENSITIVITY
     Dosage: 10 MG, QD
     Dates: start: 20130328
  3. MONTELUKAST SODIUM [Suspect]
     Indication: DRUG HYPERSENSITIVITY
     Dosage: UNK
     Dates: start: 20130301, end: 20130328
  4. MONTELUKAST SODIUM [Suspect]
     Indication: DRUG HYPERSENSITIVITY
  5. CARDIZEM LA [Concomitant]
  6. SYNTHROID [Concomitant]
     Dosage: CONCENTRATION : 112 (UNITS UNKNOWN)
  7. VITAMIN D (UNSPECIFIED) [Concomitant]
     Dosage: CONCENTRATION : 2000 (UNITS UNKNOWN)

REACTIONS (2)
  - Diarrhoea [Recovered/Resolved]
  - Abdominal pain [Recovered/Resolved]
